FAERS Safety Report 20448145 (Version 2)
Quarter: 2022Q1

REPORT INFORMATION
  Report Type: Spontaneous
  Country: FR (occurrence: None)
  Receive Date: 20220209
  Receipt Date: 20220211
  Transmission Date: 20220424
  Serious: Yes (Life-Threatening, Hospitalization)
  Sender: FDA-Public Use
  Company Number: FR-Orion Corporation ORION PHARMA-TREX2022-0023

PATIENT
  Age: 81 Year
  Sex: Male

DRUGS (11)
  1. METHOTREXATE SODIUM [Suspect]
     Active Substance: METHOTREXATE SODIUM
     Indication: Polyarthritis
     Dosage: STRENGTH: 10 MG, TOOK ONCE DAILY INSTEAD OF ONCE WEEKLY DUE TO PRESCRIBING ERROR ON AN UNKNOWN DATE
     Route: 048
     Dates: end: 20220113
  2. METFORMIN [Concomitant]
     Active Substance: METFORMIN HYDROCHLORIDE
     Route: 065
  3. SITAGLIPTIN [Concomitant]
     Active Substance: SITAGLIPTIN
     Route: 065
  4. FOLIC ACID [Concomitant]
     Active Substance: FOLIC ACID
     Route: 065
  5. GLIMEPIRIDE [Concomitant]
     Active Substance: GLIMEPIRIDE
     Route: 065
  6. ROSUVASTATIN [Concomitant]
     Active Substance: ROSUVASTATIN
     Route: 065
  7. ESOMEPRAZOLE [Concomitant]
     Active Substance: ESOMEPRAZOLE
     Route: 065
  8. CLOPIDOGREL [Concomitant]
     Active Substance: CLOPIDOGREL BISULFATE
     Route: 065
  9. SPIRONOLACTONE [Concomitant]
     Active Substance: SPIRONOLACTONE
     Route: 065
  10. BISOPROLOL [Concomitant]
     Active Substance: BISOPROLOL
     Route: 065
  11. INDAPAMIDE [Concomitant]
     Active Substance: INDAPAMIDE
     Route: 065

REACTIONS (16)
  - Product prescribing error [Unknown]
  - Accidental overdose [Unknown]
  - Bone marrow failure [Recovered/Resolved]
  - Dependence on respirator [Unknown]
  - Product use in unapproved indication [Unknown]
  - Confusional state [Unknown]
  - Agitation [Unknown]
  - Colitis [Unknown]
  - Duodenitis [Unknown]
  - Pneumonitis [Unknown]
  - Pyrexia [Unknown]
  - General physical health deterioration [Unknown]
  - Fatigue [Unknown]
  - Decreased appetite [Unknown]
  - Asthenia [Unknown]
  - Restlessness [Unknown]

NARRATIVE: CASE EVENT DATE: 20220101
